FAERS Safety Report 20416392 (Version 1)
Quarter: 2022Q1

REPORT INFORMATION
  Report Type: Spontaneous
  Country: GB (occurrence: GB)
  Receive Date: 20220202
  Receipt Date: 20220202
  Transmission Date: 20220423
  Serious: Yes (Hospitalization)
  Sender: FDA-Public Use
  Company Number: GB-VERTEX PHARMACEUTICALS-2022-001847

PATIENT
  Sex: Male

DRUGS (4)
  1. ELEXACAFTOR\IVACAFTOR\TEZACAFTOR [Suspect]
     Active Substance: ELEXACAFTOR\IVACAFTOR\TEZACAFTOR
     Indication: Cystic fibrosis
     Dosage: 2 TABS (75MG IVACAFTOR/50MG TEZACAFTOR/100MG ELEXACAFTOR) AM
     Route: 048
  2. ELEXACAFTOR\IVACAFTOR\TEZACAFTOR [Suspect]
     Active Substance: ELEXACAFTOR\IVACAFTOR\TEZACAFTOR
     Dosage: CHANGED DOSAGE
     Route: 048
  3. KALYDECO [Suspect]
     Active Substance: IVACAFTOR
     Indication: Cystic fibrosis
     Dosage: 1 TAB (150MG IVA) IN EVENING
     Route: 048
  4. KALYDECO [Suspect]
     Active Substance: IVACAFTOR
     Dosage: CHANGED DOSAGE
     Route: 048

REACTIONS (1)
  - Hospitalisation [Unknown]
